FAERS Safety Report 24838297 (Version 1)
Quarter: 2025Q1

REPORT INFORMATION
  Report Type: Spontaneous
  Country: US (occurrence: US)
  Receive Date: 20250113
  Receipt Date: 20250113
  Transmission Date: 20250409
  Serious: No
  Sender: PFIZER
  Company Number: US-PFIZER INC-PV202500004388

PATIENT
  Age: 42 Year
  Sex: Male

DRUGS (4)
  1. VELSIPITY [Interacting]
     Active Substance: ETRASIMOD ARGININE
  2. METOPROLOL TARTRATE [Interacting]
     Active Substance: METOPROLOL TARTRATE
  3. ZOFRAN [Interacting]
     Active Substance: ONDANSETRON HYDROCHLORIDE
  4. FLECAINIDE [Interacting]
     Active Substance: FLECAINIDE
     Dosage: 2 MG, 1X/DAY

REACTIONS (1)
  - Drug interaction [Unknown]
